FAERS Safety Report 25903630 (Version 1)
Quarter: 2025Q4

REPORT INFORMATION
  Report Type: Spontaneous
  Country: EU (occurrence: EU)
  Receive Date: 20251010
  Receipt Date: 20251010
  Transmission Date: 20260117
  Serious: Yes (Other)
  Sender: TEVA
  Company Number: None

PATIENT
  Age: 74 Year
  Sex: Male
  Weight: 81 kg

DRUGS (1)
  1. AMLODIPINE [Suspect]
     Active Substance: AMLODIPINE BESYLATE
     Indication: Hypertension
     Dosage: 1 X PER DAY: AMLODIPINE BESILATE / BRAND NAME NOT SPECIFIED
     Route: 065
     Dates: start: 20231108, end: 20240902

REACTIONS (1)
  - Hypertensive crisis [Unknown]
